FAERS Safety Report 25619423 (Version 1)
Quarter: 2025Q3

REPORT INFORMATION
  Report Type: Spontaneous
  Country: EU (occurrence: EU)
  Receive Date: 20250729
  Receipt Date: 20250729
  Transmission Date: 20251021
  Serious: Yes (Hospitalization)
  Sender: PFIZER
  Company Number: None

PATIENT
  Age: 18 Year
  Sex: Female

DRUGS (6)
  1. SULFASALAZINE [Suspect]
     Active Substance: SULFASALAZINE
     Indication: Juvenile idiopathic arthritis
     Dosage: 1000 MG, 2X/DAY
     Dates: start: 20250408, end: 20250424
  2. PREDNISOLONE [Concomitant]
     Active Substance: PREDNISOLONE
  3. ONDANSETRON STADA [Concomitant]
  4. ALBUTEROL SULFATE [Concomitant]
     Active Substance: ALBUTEROL SULFATE
  5. BUDESONIDE [Concomitant]
     Active Substance: BUDESONIDE
  6. PEPCID [Concomitant]
     Active Substance: FAMOTIDINE

REACTIONS (1)
  - Skin reaction [Unknown]

NARRATIVE: CASE EVENT DATE: 20250424
